FAERS Safety Report 5365023-7 (Version None)
Quarter: 2007Q2

REPORT INFORMATION
  Report Type: 
  Country: None (occurrence: None)
  Receive Date: 20070530
  Receipt Date: 20070125
  Transmission Date: 20071010
  Serious: No
  Sender: FDA-Public Use
  Company Number: 2007PV029039

PATIENT
  Sex: Male

DRUGS (1)
  1. BYETTA [Suspect]
     Indication: DRUG USE FOR UNKNOWN INDICATION
     Dosage: 5 MCG;SC   10 MCG;SC   5 MCG;SC
     Route: 058

REACTIONS (3)
  - DEPRESSED MOOD [None]
  - IRRITABILITY [None]
  - NAUSEA [None]
